FAERS Safety Report 8311899-0 (Version None)
Quarter: 2012Q2

REPORT INFORMATION
  Report Type: 
  Country: None (occurrence: None)
  Receive Date: 20120425
  Receipt Date: 20120416
  Transmission Date: 20120825
  Serious: Yes (Hospitalization, Other)
  Sender: FDA-Public Use
  Company Number: US-ACTELION-A-US2012-61829

PATIENT

DRUGS (5)
  1. VENTAVIS [Suspect]
     Indication: PULMONARY ARTERIAL HYPERTENSION
     Dosage: UNK ?G, UNK
     Route: 055
     Dates: start: 20111014
  2. TRACLEER [Suspect]
     Indication: PULMONARY ARTERIAL HYPERTENSION
     Dosage: UNK MG, UNK
     Route: 048
     Dates: start: 20110412
  3. COUMADIN [Concomitant]
  4. REVATIO [Concomitant]
  5. CALCIUM CHANNEL BLOCKERS [Concomitant]

REACTIONS (8)
  - FATIGUE [None]
  - PYREXIA [None]
  - MYOCARDIAL INFARCTION [None]
  - DYSPNOEA [None]
  - SEPSIS [None]
  - RESPIRATORY DISTRESS [None]
  - LIVER FUNCTION TEST ABNORMAL [None]
  - VENTRICULAR TACHYCARDIA [None]
